FAERS Safety Report 5692869-8 (Version None)
Quarter: 2008Q2

REPORT INFORMATION
  Report Type: 
  Country: None (occurrence: None)
  Receive Date: 20080401
  Receipt Date: 20080315
  Transmission Date: 20081010
  Serious: Yes (Other)
  Sender: FDA-Public Use
  Company Number: DSA_62028_2008

PATIENT
  Sex: Male

DRUGS (2)
  1. D.H.E. 45 (D.H.E.) (XCEL) [Suspect]
     Indication: HEART RATE DECREASED
     Dosage: (DF)
     Dates: start: 19950101
  2. D.H.E. 45 (D.H.E.) (XCEL) [Suspect]
     Indication: HYPOTENSION
     Dosage: (DF)
     Dates: start: 19950101

REACTIONS (2)
  - ABDOMINAL PAIN UPPER [None]
  - CHEST PAIN [None]
